FAERS Safety Report 6518672-4 (Version None)
Quarter: 2009Q4

REPORT INFORMATION
  Report Type: 
  Country: None (occurrence: None)
  Receive Date: 20091228
  Receipt Date: 20091218
  Transmission Date: 20100525
  Serious: Yes (Death, Hospitalization)
  Sender: FDA-Public Use
  Company Number: KR-ROCHE-675492

PATIENT
  Age: 1 Year
  Sex: Female

DRUGS (2)
  1. TAMIFLU [Suspect]
     Indication: H1N1 INFLUENZA
     Dosage: FREQUENCY NOT REPORTED.
     Route: 065
     Dates: start: 20091116
  2. TAMIFLU [Suspect]
     Dosage: DOSE WAS DOUBLED.
     Route: 065

REACTIONS (3)
  - ACUTE RESPIRATORY DISTRESS SYNDROME [None]
  - PATHOGEN RESISTANCE [None]
  - PNEUMONIA [None]
